FAERS Safety Report 10506286 (Version 3)
Quarter: 2015Q1

REPORT INFORMATION
  Report Type: Report from Study
  Country: CA (occurrence: CA)
  Receive Date: 20141009
  Receipt Date: 20150115
  Transmission Date: 20150720
  Serious: Yes (Hospitalization, Other)
  Sender: FDA-Public Use
  Company Number: CA-AMGEN-CANSL2014076594

PATIENT
  Age: 84 Year
  Sex: Female

DRUGS (1)
  1. PROLIA [Suspect]
     Active Substance: DENOSUMAB
     Indication: OSTEOPOROSIS POSTMENOPAUSAL
     Dosage: 60 MG, Q6MO
     Route: 058
     Dates: start: 20130226

REACTIONS (5)
  - Hernia repair [Unknown]
  - Malaise [Unknown]
  - Arthropathy [Unknown]
  - Hip arthroplasty [Unknown]
  - Pain [Unknown]
